FAERS Safety Report 5962983-8 (Version None)
Quarter: 2008Q4

REPORT INFORMATION
  Report Type: 
  Country: None (occurrence: None)
  Receive Date: 20081119
  Receipt Date: 20081007
  Transmission Date: 20090506
  Serious: No
  Sender: FDA-Public Use
  Company Number: WAES 0810USA01215

PATIENT
  Age: 68 Year
  Sex: Male

DRUGS (21)
  1. JANUVIA [Suspect]
     Indication: DIABETES MELLITUS
     Dosage: 100 MG/DAILY/PO
     Route: 048
     Dates: start: 20060101
  2. AVODART [Concomitant]
  3. CARLSON LABS PSYLLIUM FIBER SUPP [Concomitant]
  4. ASPIRIN [Concomitant]
  5. FLOMAX (MORNIFLUMATE) [Concomitant]
  6. LIPITOR [Concomitant]
  7. NORVASC [Concomitant]
  8. PLAVIX [Concomitant]
  9. PROTONIX [Concomitant]
  10. TOPROL-XL [Concomitant]
  11. ZOLOFT [Concomitant]
  12. ALPRAZOLAM [Concomitant]
  13. ASCORBIC ACID [Concomitant]
  14. CORTISONE ACETATE TAB [Concomitant]
  15. LISINOPRIL [Concomitant]
  16. LYCOPENE [Concomitant]
  17. MAGNESIUM OXIDE [Concomitant]
  18. METFORMIN HCL [Concomitant]
  19. NITROGLYCERIN [Concomitant]
  20. SAW PALMETTO [Concomitant]
  21. ZINC (UNSPECIFIED) [Concomitant]

REACTIONS (2)
  - BLOOD GLUCOSE INCREASED [None]
  - RASH [None]
